FAERS Safety Report 8857410 (Version 1)
Quarter: 2012Q4

REPORT INFORMATION
  Report Type: 
  Country: CA (occurrence: CA)
  Receive Date: 20121024
  Receipt Date: 20121024
  Transmission Date: 20130627
  Serious: Yes (Other)
  Sender: FDA-Public Use
  Company Number: CA-AMGEN-CANSP2012067064

PATIENT
  Age: 79 Year
  Sex: Female

DRUGS (6)
  1. PROLIA [Suspect]
     Indication: OSTEOPOROSIS POSTMENOPAUSAL
  2. PRADEX [Concomitant]
     Indication: ATRIAL FIBRILLATION
  3. PANTOLOC                           /01263204/ [Concomitant]
  4. BISOPROLOL [Concomitant]
  5. AMLODIPINE [Concomitant]
  6. LYRICA [Concomitant]

REACTIONS (3)
  - Pyloric stenosis [Not Recovered/Not Resolved]
  - Eating disorder [Not Recovered/Not Resolved]
  - Back pain [Not Recovered/Not Resolved]
